FAERS Safety Report 9028251 (Version 1)
Quarter: 2013Q1

REPORT INFORMATION
  Report Type: Spontaneous
  Country: US (occurrence: US)
  Receive Date: 20130124
  Receipt Date: 20130124
  Transmission Date: 20140127
  Serious: No
  Sender: FDA-Public Use
  Company Number: US-PFIZER INC-2013030366

PATIENT
  Age: 41 Year
  Sex: Female
  Weight: 47.62 kg

DRUGS (3)
  1. PRISTIQ [Suspect]
     Indication: DEPRESSION
     Dosage: UNK
     Dates: start: 20130105
  2. PRISTIQ [Suspect]
     Indication: ANXIETY
  3. PRISTIQ [Suspect]
     Indication: PAIN

REACTIONS (6)
  - Oral discomfort [Not Recovered/Not Resolved]
  - Gastrooesophageal reflux disease [Recovered/Resolved]
  - Dry mouth [Recovered/Resolved]
  - Dysgeusia [Not Recovered/Not Resolved]
  - Decreased appetite [Not Recovered/Not Resolved]
  - Weight decreased [Unknown]
